FAERS Safety Report 10518227 (Version 1)
Quarter: 2014Q4

REPORT INFORMATION
  Report Type: Spontaneous
  Country: US (occurrence: None)
  Receive Date: 20141003
  Receipt Date: 20141003
  Transmission Date: 20150528
  Serious: Yes (Hospitalization, Other)
  Sender: FDA-Public Use
  Company Number: 1019935

PATIENT
  Sex: Female

DRUGS (13)
  1. PEGASYS [Suspect]
     Active Substance: PEGINTERFERON ALFA-2A
     Indication: CHRONIC HEPATITIS C
     Route: 058
     Dates: start: 20110909
  2. RIBAVIRIN (RIBAVIRIN) [Suspect]
     Active Substance: RIBAVIRIN
     Indication: CHRONIC HEPATITIS C
     Dates: start: 20110909
  3. LISINOPRIL (LISINOPRIL) [Concomitant]
     Active Substance: LISINOPRIL
  4. ATENOLOL (ATENOLOL) [Concomitant]
     Active Substance: ATENOLOL
  5. FIORICET (BUTALBITAL) [Concomitant]
  6. ACTONEL (RISEDRONATE SODIUM) [Concomitant]
  7. GLY-OXIDE (CARBAMIDE PEROXIDE) [Concomitant]
  8. LODINE (ETODOLAC) [Concomitant]
  9. LAXATIVE NOS [Suspect]
     Active Substance: UNSPECIFIED INGREDIENT
     Indication: PRODUCT USED FOR UNKNOWN INDICATION
  10. VICODIN (HYDROCODONE TARTRATE) [Concomitant]
  11. PREDNISONE (PREDNISONE) [Concomitant]
     Active Substance: PREDNISONE
  12. PLAQUENIL (HYDROXYCHLOROQUINE SULFATE) [Concomitant]
  13. PRILOSEC (OMEPRAZOLE) [Concomitant]
     Active Substance: OMEPRAZOLE MAGNESIUM

REACTIONS (7)
  - Unevaluable event [None]
  - Vitamin D decreased [None]
  - Depression [None]
  - Transient ischaemic attack [None]
  - Aphthous stomatitis [None]
  - Petit mal epilepsy [None]
  - Overdose [None]
